FAERS Safety Report 7514332-1 (Version None)
Quarter: 2011Q2

REPORT INFORMATION
  Report Type: 
  Country: None (occurrence: None)
  Receive Date: 20110601
  Receipt Date: 20110426
  Transmission Date: 20111010
  Serious: No
  Sender: FDA-Public Use
  Company Number: US-BIOGENIDEC-2011BI015731

PATIENT
  Age: 39 Year
  Sex: Female

DRUGS (1)
  1. TYSABRI [Suspect]
     Indication: MULTIPLE SCLEROSIS
     Route: 042
     Dates: start: 20110426

REACTIONS (9)
  - MUSCLE SPASMS [None]
  - BRONCHITIS [None]
  - MIGRAINE [None]
  - DIZZINESS [None]
  - WEIGHT DECREASED [None]
  - HYPERTENSION [None]
  - PARAESTHESIA [None]
  - PARANASAL SINUS DISCOMFORT [None]
  - HEADACHE [None]
